FAERS Safety Report 23164171 (Version 1)
Quarter: 2023Q4

REPORT INFORMATION
  Report Type: Spontaneous
  Country: NL (occurrence: NL)
  Receive Date: 20231109
  Receipt Date: 20231109
  Transmission Date: 20240109
  Serious: Yes (Hospitalization, Other)
  Sender: FDA-Public Use
  Company Number: None

PATIENT
  Age: 94 Year
  Sex: Male
  Weight: 75 kg

DRUGS (9)
  1. QUETIAPINE [Suspect]
     Active Substance: QUETIAPINE
     Indication: Sleep deficit
     Dosage: TABLET MGA 50MG?1X PER DAY 1 PIECE
     Dates: start: 20220401, end: 20230928
  2. FERROUS FUMARATE [Concomitant]
     Active Substance: FERROUS FUMARATE
     Dosage: TABLET, 200 MG
  3. PANTOPRAZOLE [Concomitant]
     Active Substance: PANTOPRAZOLE
     Dosage: TABLET MSR 40MG
  4. TEMAZEPAM [Concomitant]
     Active Substance: TEMAZEPAM
     Dosage: CAPSULE, 10 MG (MILLIGRAM)
  5. OXAZEPAM [Concomitant]
     Active Substance: OXAZEPAM
     Dosage: TABLET, 10 MG (MILLIGRAM)
  6. RIVAROXABAN [Concomitant]
     Active Substance: RIVAROXABAN
     Dosage: TABLET, 15 MG (MILLIGRAM)
  7. TAMSULOSIN [Concomitant]
     Active Substance: TAMSULOSIN
     Dosage: MODIFIED-RELEASE CAPSULE, 0.4 MG
  8. DUTASTERIDE [Concomitant]
     Active Substance: DUTASTERIDE
     Dosage: SOFT CAPSULE 0.5 MG / AVODART CAPSULE 0.5 MG
  9. SIMVASTATIN [Concomitant]
     Active Substance: SIMVASTATIN
     Dosage: FILM-COATED TABLET, 20 MG

REACTIONS (5)
  - Tardive dyskinesia [Not Recovered/Not Resolved]
  - Dry mouth [Unknown]
  - Hallucination [Not Recovered/Not Resolved]
  - Constipation [Unknown]
  - Delirium [Not Recovered/Not Resolved]
